FAERS Safety Report 13697532 (Version 5)
Quarter: 2017Q3

REPORT INFORMATION
  Report Type: Report from Study
  Country: GB (occurrence: GB)
  Receive Date: 20170628
  Receipt Date: 20170824
  Transmission Date: 20171127
  Serious: Yes (Other)
  Sender: FDA-Public Use
  Company Number: GB-JNJFOC-20170617898

PATIENT
  Sex: Female

DRUGS (2)
  1. SIMPONI [Suspect]
     Active Substance: GOLIMUMAB
     Indication: PRODUCT USED FOR UNKNOWN INDICATION
     Route: 058
  2. SIMPONI [Suspect]
     Active Substance: GOLIMUMAB
     Indication: PRODUCT USED FOR UNKNOWN INDICATION
     Route: 058
     Dates: start: 20170715

REACTIONS (10)
  - Hypothyroidism [Unknown]
  - Drug effect decreased [Unknown]
  - Arthralgia [Unknown]
  - Abdominal discomfort [Recovered/Resolved]
  - Back pain [Unknown]
  - Abscess [Recovering/Resolving]
  - Mouth ulceration [Recovered/Resolved]
  - Feeling abnormal [Unknown]
  - Psoriasis [Unknown]
  - Amenorrhoea [Not Recovered/Not Resolved]

NARRATIVE: CASE EVENT DATE: 2017
